FAERS Safety Report 6719798-2 (Version None)
Quarter: 2010Q2

REPORT INFORMATION
  Report Type: 
  Country: None (occurrence: None)
  Receive Date: 20100511
  Receipt Date: 20100506
  Transmission Date: 20101027
  Serious: Yes (Hospitalization)
  Sender: FDA-Public Use
  Company Number: Z0003787A

PATIENT
  Age: 66 Year
  Sex: Male
  Weight: 159.1 kg

DRUGS (25)
  1. GW685698 + GW642444 INHALATION POWDER [Suspect]
     Indication: CHRONIC OBSTRUCTIVE PULMONARY DISEASE
     Route: 055
     Dates: start: 20091119
  2. ADVAIR DISKUS 100/50 [Suspect]
     Indication: CHRONIC OBSTRUCTIVE PULMONARY DISEASE
     Route: 055
     Dates: start: 20091022, end: 20091119
  3. ACETAMINOPHEN [Concomitant]
     Indication: PAIN
     Dosage: 650MG AS REQUIRED
     Route: 048
     Dates: start: 20100401, end: 20100403
  4. AMIODARONE [Concomitant]
     Indication: ATRIAL FLUTTER
     Dosage: 900MG TWICE PER DAY
     Route: 042
     Dates: start: 20100401, end: 20100402
  5. AMIODARONE [Concomitant]
     Dosage: 200MG PER DAY
     Route: 048
     Dates: start: 20100402, end: 20100403
  6. ATROPINE [Concomitant]
     Indication: BRADYCARDIA
     Dosage: 1MG AS REQUIRED
     Route: 042
     Dates: start: 20100401, end: 20100403
  7. BIVALIRUDIN [Concomitant]
     Indication: ANTICOAGULANT THERAPY
     Dosage: 250MG SINGLE DOSE
     Route: 042
     Dates: start: 20100402, end: 20100402
  8. FRAGMIN [Concomitant]
     Indication: ANTICOAGULANT THERAPY
     Dosage: 10000UNIT PER DAY
     Route: 058
     Dates: start: 20100401, end: 20100403
  9. COLACE [Concomitant]
     Indication: CONSTIPATION
     Dosage: 100MG AS REQUIRED
     Route: 048
     Dates: start: 20100401, end: 20100403
  10. FENTANYL CITRATE [Concomitant]
     Dosage: 50MCG SINGLE DOSE
     Route: 030
     Dates: start: 20100402, end: 20100402
  11. HYDROMORPHONE HYDROCHLORIDE [Concomitant]
     Indication: PAIN
     Dosage: 1MG AS REQUIRED
     Route: 030
     Dates: start: 20100402, end: 20100402
  12. LORAZEPAM [Concomitant]
     Indication: AGITATION
     Dosage: .5MG AS REQUIRED
     Route: 048
     Dates: start: 20100401, end: 20100403
  13. LORATADINE [Concomitant]
     Dosage: 10MG PER DAY
     Route: 048
     Dates: start: 20100402, end: 20100403
  14. METOPROLOL TARTRATE [Concomitant]
     Indication: TACHYCARDIA
     Dosage: 50MG TWICE PER DAY
     Route: 048
     Dates: start: 20100401, end: 20100403
  15. MIDAZOLAM HYDROCHLORIDE [Concomitant]
     Dosage: 2MG SINGLE DOSE
     Route: 042
     Dates: start: 20100402, end: 20100402
  16. MONTELUKAST SODIUM [Concomitant]
     Dosage: 10MG PER DAY
     Route: 048
     Dates: start: 20100402, end: 20100403
  17. MORPHINE SULFATE [Concomitant]
     Indication: PAIN
     Dosage: 2MG AS REQUIRED
     Route: 042
     Dates: start: 20100402, end: 20100403
  18. NITROGLYCERIN [Concomitant]
     Indication: CHEST PAIN
     Dosage: .4MG AS REQUIRED
     Route: 060
     Dates: start: 20100401, end: 20100403
  19. NITROGLYCERIN [Concomitant]
     Indication: CHEST PAIN
     Dosage: 50MG SINGLE DOSE
     Route: 042
     Dates: start: 20100402, end: 20100402
  20. PRASUGREL [Concomitant]
     Indication: PERCUTANEOUS CORONARY INTERVENTION
     Dosage: 10MG SINGLE DOSE
     Route: 048
     Dates: start: 20100403, end: 20100403
  21. PROCHLORPERAZINE [Concomitant]
     Indication: NAUSEA
     Dosage: 10MG AS REQUIRED
     Route: 048
     Dates: start: 20100402, end: 20100403
  22. PROCHLORPERAZINE [Concomitant]
     Dosage: 25MG AS REQUIRED
     Route: 054
     Dates: start: 20100402, end: 20100403
  23. PROCHLORPERAZINE [Concomitant]
     Route: 042
     Dates: start: 20100402, end: 20100403
  24. TEMAZEPAM [Concomitant]
     Indication: INSOMNIA
     Dosage: 15MG AT NIGHT
     Route: 048
     Dates: start: 20100401, end: 20100403
  25. VERAPAMIL HYDROCHLORIDE [Concomitant]
     Indication: ARRHYTHMIA
     Dosage: 5MG SINGLE DOSE
     Route: 042
     Dates: start: 20100402, end: 20100402

REACTIONS (1)
  - CHRONIC OBSTRUCTIVE PULMONARY DISEASE [None]
